FAERS Safety Report 5073707-3 (Version None)
Quarter: 2006Q3

REPORT INFORMATION
  Report Type: 
  Country: None (occurrence: None)
  Receive Date: 20060808
  Receipt Date: 20050413
  Transmission Date: 20061208
  Serious: No
  Sender: FDA-Public Use
  Company Number: US-AMGEN-KDL126841

PATIENT
  Age: 66 Year
  Sex: Female

DRUGS (2)
  1. PROCRIT [Suspect]
     Indication: ANAEMIA OF MALIGNANT DISEASE
     Dates: start: 20050412
  2. NAVELBINE [Concomitant]
     Dates: start: 20050401

REACTIONS (3)
  - ARTHRALGIA [None]
  - BACK PAIN [None]
  - SOMNOLENCE [None]
